FAERS Safety Report 7027735-9 (Version None)
Quarter: 2010Q4

REPORT INFORMATION
  Report Type: 
  Country: None (occurrence: None)
  Receive Date: 20101004
  Receipt Date: 20100927
  Transmission Date: 20110411
  Serious: Yes (Death, Hospitalization, Other)
  Sender: FDA-Public Use
  Company Number: US-AMGEN-QUU386601

PATIENT
  Sex: Male

DRUGS (1)
  1. NPLATE [Suspect]
     Indication: IDIOPATHIC THROMBOCYTOPENIC PURPURA
     Dates: start: 20090805, end: 20090819

REACTIONS (12)
  - CEREBRAL HAEMORRHAGE [None]
  - CONTUSION [None]
  - DRUG INEFFECTIVE [None]
  - EPISTAXIS [None]
  - FALL [None]
  - GASTROINTESTINAL HAEMORRHAGE [None]
  - GRAND MAL CONVULSION [None]
  - IDIOPATHIC THROMBOCYTOPENIC PURPURA [None]
  - MOUTH HAEMORRHAGE [None]
  - POST PROCEDURAL HAEMORRHAGE [None]
  - PURPURA [None]
  - SKIN HAEMORRHAGE [None]
